FAERS Safety Report 5583969-1 (Version None)
Quarter: 2008Q1

REPORT INFORMATION
  Report Type: 
  Country: None (occurrence: None)
  Receive Date: 20080108
  Receipt Date: 20080102
  Transmission Date: 20080703
  Serious: Yes (Disabling)
  Sender: FDA-Public Use
  Company Number: GB-WYE-G00733907

PATIENT
  Sex: Male

DRUGS (4)
  1. EFFEXOR XR [Suspect]
     Indication: DEPRESSED MOOD
     Dosage: 225 MG FREQUENCY UNKNOWN
     Route: 048
     Dates: start: 20070501, end: 20070101
  2. EFFEXOR XR [Suspect]
     Route: 048
     Dates: start: 20070101, end: 20070101
  3. EFFEXOR XR [Suspect]
     Dosage: 75 MG FREQUENCY UNKNOWN
     Dates: start: 20070101
  4. OLANZAPINE [Concomitant]
     Indication: AGITATION
     Route: 048
     Dates: end: 20071001

REACTIONS (1)
  - PARKINSONISM [None]
